FAERS Safety Report 10196474 (Version 1)
Quarter: 2014Q2

REPORT INFORMATION
  Report Type: Report from Study
  Country: CO (occurrence: CO)
  Receive Date: 20140527
  Receipt Date: 20140527
  Transmission Date: 20141212
  Serious: Yes (Other)
  Sender: FDA-Public Use
  Company Number: CO-US-EMD SERONO, INC.-7293168

PATIENT
  Age: 14 Year
  Sex: Male
  Weight: 40 kg

DRUGS (1)
  1. SAIZEN [Suspect]
     Indication: BODY HEIGHT BELOW NORMAL
     Route: 058
     Dates: start: 20131104

REACTIONS (1)
  - Bone disorder [Unknown]
